FAERS Safety Report 6872040-4 (Version None)
Quarter: 2010Q3

REPORT INFORMATION
  Report Type: 
  Country: None (occurrence: None)
  Receive Date: 20100723
  Receipt Date: 20100712
  Transmission Date: 20110219
  Serious: Yes (Hospitalization, Congenital Anomaly)
  Sender: FDA-Public Use
  Company Number: ES-PFIZER INC-2010086295

PATIENT
  Age: 20 Day

DRUGS (3)
  1. DOSTINEX [Suspect]
     Indication: PROLACTINOMA
     Dosage: UNK
     Route: 064
     Dates: start: 20090701, end: 20090701
  2. BROMOCRIPTINE [Suspect]
     Indication: PROLACTINOMA
     Dosage: UNK
     Route: 064
     Dates: start: 20090805, end: 20100119
  3. IRON/VITAMINS NOS [Concomitant]
     Dosage: UNK
     Route: 064

REACTIONS (6)
  - CONVULSION NEONATAL [None]
  - DRUG EXPOSURE DURING PREGNANCY [None]
  - FOETAL GROWTH RESTRICTION [None]
  - INFANTILE APNOEIC ATTACK [None]
  - MULTIPLE CONGENITAL ABNORMALITIES [None]
  - POLYHYDRAMNIOS [None]
